FAERS Safety Report 21051137 (Version 12)
Quarter: 2024Q2

REPORT INFORMATION
  Report Type: Spontaneous
  Country: CA (occurrence: CA)
  Receive Date: 20220707
  Receipt Date: 20240402
  Transmission Date: 20240716
  Serious: Yes (Other)
  Sender: FDA-Public Use
  Company Number: CA-CELLTRION INC.-2022CA007541

PATIENT

DRUGS (22)
  1. INFLECTRA [Suspect]
     Active Substance: INFLIXIMAB-DYYB
     Indication: Crohn^s disease
     Dosage: 400 MG, INDUCTION AT 0 2, 6 WEEKS THEN EVERY 8 WEEKS
     Route: 042
     Dates: start: 20220510
  2. INFLECTRA [Suspect]
     Active Substance: INFLIXIMAB-DYYB
     Dosage: 400 MG, INDUCTION AT 0 2, 6 WEEKS THEN EVERY 8 WEEKS
     Route: 042
     Dates: start: 20220525
  3. INFLECTRA [Suspect]
     Active Substance: INFLIXIMAB-DYYB
     Dosage: 400 MG, INDUCTION AT 0 2, 6 WEEKS THEN EVERY 8 WEEKS
     Route: 042
     Dates: start: 20220622
  4. INFLECTRA [Suspect]
     Active Substance: INFLIXIMAB-DYYB
     Dosage: 400 MG, INDUCTION AT 0 2, 6 WEEKS THEN EVERY 8 WEEKS
     Route: 042
     Dates: start: 20220622
  5. INFLECTRA [Suspect]
     Active Substance: INFLIXIMAB-DYYB
     Dosage: 400 MG, INDUCTION AT 0 2, 6 WEEKS THEN EVERY 8 WEEKS
     Route: 042
     Dates: start: 20220820
  6. INFLECTRA [Suspect]
     Active Substance: INFLIXIMAB-DYYB
     Dosage: 400 MG, INDUCTION AT 0 2, 6 WEEKS THEN EVERY 8 WEEKS
     Route: 042
     Dates: start: 20220820
  7. INFLECTRA [Suspect]
     Active Substance: INFLIXIMAB-DYYB
     Dosage: 400 MG, INDUCTION AT 0 2, 6 WEEKS THEN EVERY 8 WEEKS
     Route: 042
     Dates: start: 20221015
  8. INFLECTRA [Suspect]
     Active Substance: INFLIXIMAB-DYYB
     Dosage: 400 MG, INDUCTION AT 0 2, 6 WEEKS THEN EVERY 8 WEEKS
     Route: 042
     Dates: start: 20221210
  9. INFLECTRA [Suspect]
     Active Substance: INFLIXIMAB-DYYB
     Dosage: 400 MG, INDUCTION AT 0 2, 6 WEEKS THEN EVERY 8 WEEKS
     Route: 042
     Dates: start: 20230204
  10. INFLECTRA [Suspect]
     Active Substance: INFLIXIMAB-DYYB
     Dosage: 400 MG, AFTER 27 WEEKS (PRESCRIBED TREATMENT ARE EVERY 8 WEEKS)
     Route: 042
     Dates: start: 20230812
  11. INFLECTRA [Suspect]
     Active Substance: INFLIXIMAB-DYYB
     Dosage: 400 MG,  INDUCTION AT 0 2, 6 WEEKS THEN EVERY 8 WEEKS
     Route: 042
     Dates: start: 20231007
  12. INFLECTRA [Suspect]
     Active Substance: INFLIXIMAB-DYYB
     Dosage: 400 MG Q 0 2, 6 WEEK THEN EVERY 8 WEEKS (8 WEEKS)
     Route: 042
     Dates: start: 20231202
  13. INFLECTRA [Suspect]
     Active Substance: INFLIXIMAB-DYYB
     Dosage: 400MG, 8 WEEKS
     Route: 042
     Dates: start: 20240127
  14. INFLECTRA [Suspect]
     Active Substance: INFLIXIMAB-DYYB
     Dosage: 400MG, 8 WEEKS
     Route: 042
     Dates: start: 20240323
  15. AMOXICILLIN\CLAVULANATE POTASSIUM [Concomitant]
     Active Substance: AMOXICILLIN\CLAVULANATE POTASSIUM
     Dosage: 1 DF, UNKNOWN DOSE
     Route: 065
  16. CALCIUM [Concomitant]
     Active Substance: CALCIUM
     Dosage: UNK
  17. IMURAN [Concomitant]
     Active Substance: AZATHIOPRINE
     Dosage: 50 MG
     Route: 065
  18. MAGNESIUM [Concomitant]
     Active Substance: MAGNESIUM
     Dosage: UNK
  19. SULFATRIM [Concomitant]
     Active Substance: SULFAMETHOXAZOLE\TRIMETHOPRIM
     Dosage: 1 DF, UNKNOWN DOSE
     Route: 065
  20. VITAMIN B [Concomitant]
     Active Substance: VITAMIN B
     Dosage: UNK
  21. VITAMIN C [Concomitant]
     Active Substance: ASCORBIC ACID
     Dosage: UNK
  22. VITAMIN D NOS [Concomitant]
     Active Substance: VITAMIN D NOS
     Dosage: UNK

REACTIONS (24)
  - Peripheral nerve injury [Recovered/Resolved]
  - Haemorrhage [Unknown]
  - Condition aggravated [Recovered/Resolved]
  - Anal fissure [Recovered/Resolved]
  - Abscess [Recovered/Resolved]
  - Rash pruritic [Unknown]
  - Hypersensitivity [Unknown]
  - Urticaria [Unknown]
  - Erythema [Unknown]
  - Pruritus [Unknown]
  - Pain [Not Recovered/Not Resolved]
  - Abdominal pain [Recovering/Resolving]
  - Fistula [Recovered/Resolved]
  - Diarrhoea [Not Recovered/Not Resolved]
  - Dyspnoea [Recovered/Resolved]
  - Chest pain [Recovered/Resolved]
  - Back pain [Recovered/Resolved]
  - Dizziness [Recovered/Resolved]
  - Body temperature increased [Recovered/Resolved]
  - Pallor [Recovered/Resolved]
  - Respiratory rate increased [Recovered/Resolved]
  - Poor venous access [Recovered/Resolved]
  - Arthralgia [Recovered/Resolved]
  - Off label use [Unknown]

NARRATIVE: CASE EVENT DATE: 20220101
